FAERS Safety Report 7625512-9 (Version None)
Quarter: 2011Q3

REPORT INFORMATION
  Report Type: 
  Country: None (occurrence: None)
  Receive Date: 20110721
  Receipt Date: 20100924
  Transmission Date: 20111222
  Serious: No
  Sender: FDA-Public Use
  Company Number: US-KINGPHARMUSA00001-K201001205

PATIENT
  Age: 39 Year
  Sex: Female
  Weight: 51.247 kg

DRUGS (4)
  1. SEPTRA [Suspect]
     Indication: NASAL OEDEMA
     Dosage: 800 MG, SINGLE
     Route: 048
     Dates: start: 20100922, end: 20100922
  2. PREDNISONE [Suspect]
     Dosage: 5 MG, QD
     Route: 048
     Dates: start: 20100101
  3. PREDNISONE [Suspect]
     Indication: VIRAL INFECTION
     Dosage: 5 MG, QD
     Route: 048
     Dates: start: 20100801, end: 20100801
  4. SEPTRA [Suspect]
     Indication: VIRAL INFECTION
     Dosage: 800/160 MG, QD
     Route: 048
     Dates: start: 20100801, end: 20100101

REACTIONS (7)
  - OCULAR HYPERAEMIA [None]
  - ARTHRALGIA [None]
  - PARAESTHESIA [None]
  - HEADACHE [None]
  - PAIN IN EXTREMITY [None]
  - FEELING HOT [None]
  - PAIN [None]
